APPROVED DRUG PRODUCT: FEMRING
Active Ingredient: ESTRADIOL ACETATE
Strength: EQ 0.05MG BASE/24HR
Dosage Form/Route: INSERT, EXTENDED RELEASE;VAGINAL
Application: N021367 | Product #001
Applicant: MILLICENT MANUFACTURING PR LLC
Approved: Mar 20, 2003 | RLD: Yes | RS: No | Type: RX